FAERS Safety Report 7501222-3 (Version None)
Quarter: 2011Q2

REPORT INFORMATION
  Report Type: 
  Country: None (occurrence: None)
  Receive Date: 20110524
  Receipt Date: 20110517
  Transmission Date: 20111010
  Serious: Yes (Hospitalization)
  Sender: FDA-Public Use
  Company Number: GB-PFIZER INC-2011106263

PATIENT
  Age: 80 Year
  Sex: Male

DRUGS (19)
  1. SUNITINIB MALATE [Suspect]
     Indication: RENAL CELL CARCINOMA
     Dosage: 50 MG, UNK
     Route: 048
  2. DILTIAZEM HYDROCHLORIDE [Concomitant]
  3. ZOPICLONE [Concomitant]
  4. MOVIPREP [Concomitant]
  5. PANCREATIN [Concomitant]
     Dosage: UNK
     Dates: start: 20100921
  6. ATORVASTATIN CALCIUM [Concomitant]
  7. LOPERAMIDE HYDROCHLORIDE [Concomitant]
  8. DOMPERIDONE [Concomitant]
  9. DOXAZOSIN [Concomitant]
  10. PANCREATIN [Concomitant]
     Dosage: UNK
     Dates: start: 20100921, end: 20100921
  11. DALTEPARIN SODIUM [Concomitant]
  12. METFORMIN HYDROCHLORIDE [Concomitant]
  13. NYSTATIN [Concomitant]
  14. CIPROFLOXACIN [Concomitant]
  15. BENDROFLUAZIDE [Concomitant]
  16. MELOXICAM [Concomitant]
  17. PAZOPANIB [Suspect]
     Indication: RENAL CELL CARCINOMA
     Dosage: UNK MG, UNK
     Route: 048
     Dates: start: 20101006
  18. POLYETHYLENE GLYCOL [Concomitant]
  19. FINASTERIDE [Concomitant]

REACTIONS (1)
  - GENERAL PHYSICAL HEALTH DETERIORATION [None]
